FAERS Safety Report 9238803 (Version 1)
Quarter: 2013Q2

REPORT INFORMATION
  Report Type: Report from Study
  Country: US (occurrence: US)
  Receive Date: 20130418
  Receipt Date: 20130418
  Transmission Date: 20140414
  Serious: Yes (Other)
  Sender: FDA-Public Use
  Company Number: US-ROCHE-1211599

PATIENT
  Sex: 0

DRUGS (6)
  1. CAPECITABINE [Suspect]
     Indication: OESOPHAGEAL CARCINOMA
     Dosage: RANGING FROM 500 MG AT DOSE LEVEL I TO 3500 MG AT DOSE LEVEL VII, IN 500MG INCREMENTS
     Route: 048
  2. CAPECITABINE [Suspect]
     Indication: GASTROOESOPHAGEAL CANCER
  3. DOCETAXEL [Suspect]
     Indication: OESOPHAGEAL CARCINOMA
     Dosage: 2 CYCLES FOR 6 WEEKS
     Route: 065
  4. DOCETAXEL [Suspect]
     Indication: GASTROOESOPHAGEAL CANCER
     Route: 065
  5. CARBOPLATIN [Suspect]
     Indication: OESOPHAGEAL CARCINOMA
     Dosage: TARGET AREA UNDER THE CONCENTRATION-TIME CURVE: 6MG/ML X MINUTE FOR 6 WEEKS
     Route: 065
  6. CARBOPLATIN [Suspect]
     Indication: GASTROOESOPHAGEAL CANCER

REACTIONS (15)
  - Pulmonary toxicity [Unknown]
  - Odynophagia [Unknown]
  - White blood cell count abnormal [Unknown]
  - Neutrophil count abnormal [Unknown]
  - Pneumonitis [Unknown]
  - Dysphagia [Unknown]
  - Cardiotoxicity [Unknown]
  - Dehydration [Unknown]
  - Weight decreased [Unknown]
  - Nausea [Unknown]
  - Vomiting [Unknown]
  - Fatigue [Unknown]
  - Febrile neutropenia [Unknown]
  - Thrombocytopenia [Unknown]
  - Neuropathy peripheral [Unknown]
